FAERS Safety Report 19482062 (Version 1)
Quarter: 2021Q2

REPORT INFORMATION
  Report Type: Spontaneous
  Country: US (occurrence: US)
  Receive Date: 20210630
  Receipt Date: 20210630
  Transmission Date: 20210717
  Serious: Yes (Hospitalization)
  Sender: FDA-Public Use
  Company Number: None

PATIENT
  Sex: Female

DRUGS (4)
  1. AMLODIPINE [Concomitant]
     Active Substance: AMLODIPINE BESYLATE
  2. RETACRIT [Suspect]
     Active Substance: EPOETIN ALFA-EPBX
     Indication: BREAST CANCER FEMALE
     Dosage: OTHER FREQUENCY:WEEKLY;?
     Route: 058
     Dates: start: 20210414
  3. DEXILANT [Concomitant]
     Active Substance: DEXLANSOPRAZOLE
  4. MESAOAMINE [Concomitant]

REACTIONS (2)
  - Hospitalisation [None]
  - Intentional dose omission [None]
